FAERS Safety Report 4777200-4 (Version None)
Quarter: 2005Q3

REPORT INFORMATION
  Report Type: 
  Country: None (occurrence: None)
  Receive Date: 20050923
  Receipt Date: 20050919
  Transmission Date: 20060218
  Serious: Yes (Life-Threatening)
  Sender: FDA-Public Use
  Company Number: SE-ROCHE-418344

PATIENT

DRUGS (1)
  1. CYMEVENE [Suspect]
     Indication: DRUG USE FOR UNKNOWN INDICATION
     Route: 042

REACTIONS (4)
  - BONE MARROW DEPRESSION [None]
  - COMA HEPATIC [None]
  - DRUG LEVEL INCREASED [None]
  - MULTI-ORGAN FAILURE [None]
